FAERS Safety Report 5731186-4 (Version None)
Quarter: 2008Q2

REPORT INFORMATION
  Report Type: 
  Country: None (occurrence: None)
  Receive Date: 20080507
  Receipt Date: 20080414
  Transmission Date: 20081010
  Serious: No
  Sender: FDA-Public Use
  Company Number: US-BOEHRINGER INGELHEIM GMBH, GERMANY-2008-BP-02588BP

PATIENT
  Age: 85 Year
  Sex: Female
  Weight: 47 kg

DRUGS (8)
  1. CATAPRES-TTS-1 [Suspect]
     Indication: HYPERTENSION
     Route: 061
     Dates: start: 19980101
  2. THYROID PILL [Concomitant]
  3. CHOLESTEROL PILL [Concomitant]
  4. LORAZEPAM [Concomitant]
  5. LEVOXYL [Concomitant]
  6. ZOCOR [Concomitant]
  7. KLOR-CON [Concomitant]
  8. DYAZIDE [Concomitant]

REACTIONS (4)
  - BLOOD PRESSURE INCREASED [None]
  - DIZZINESS [None]
  - DRUG INEFFECTIVE [None]
  - TREMOR [None]
